FAERS Safety Report 5411049-4 (Version None)
Quarter: 2007Q3

REPORT INFORMATION
  Report Type: 
  Country: None (occurrence: None)
  Receive Date: 20070713
  Receipt Date: 20070508
  Transmission Date: 20080115
  Serious: No
  Sender: FDA-Public Use
  Company Number: 2007SP001702

PATIENT
  Age: 65 Year
  Sex: Male
  Weight: 127.0072 kg

DRUGS (15)
  1. LUNESTA [Suspect]
     Indication: INSOMNIA
     Dosage: 2 MG; ORAL
     Route: 048
     Dates: start: 20070405, end: 20070406
  2. METFORMIN HCL [Concomitant]
  3. METOPROLOL SUCCINATE [Concomitant]
  4. MORPHINE SULFATE [Concomitant]
  5. AVANDIA [Concomitant]
  6. ZETIA [Concomitant]
  7. LEVOTHYROXINE SODIUM [Concomitant]
  8. MECLIZINE [Concomitant]
  9. ATORVASTATIN CALCIUM [Concomitant]
  10. LYRICA [Concomitant]
  11. FUROSEMIDE [Concomitant]
  12. RANITIDINE [Concomitant]
  13. AMLODIPINE BESYLATE [Concomitant]
  14. IRON [Concomitant]
  15. MIRALAX [Concomitant]

REACTIONS (1)
  - AMNESIA [None]
